FAERS Safety Report 6244144-0 (Version None)
Quarter: 2009Q2

REPORT INFORMATION
  Report Type: 
  Country: None (occurrence: None)
  Receive Date: 20090623
  Receipt Date: 20090623
  Transmission Date: 20091009
  Serious: Yes (Hospitalization)
  Sender: FDA-Public Use
  Company Number: None

PATIENT
  Age: 87 Year
  Sex: Male
  Weight: 61.7 kg

DRUGS (2)
  1. HYDROCHLOROTHIAZIDE [Suspect]
     Indication: HYPERTENSION
     Dosage: 25 MG EVERY DAY PO
     Route: 048
     Dates: start: 20020301, end: 20090618
  2. TERAZOSIN HCL [Suspect]
     Indication: HYPERTENSION
     Dosage: 5 MG HS PO
     Route: 048
     Dates: start: 20070116, end: 20090618

REACTIONS (1)
  - SYNCOPE [None]
